FAERS Safety Report 8035499-5 (Version None)
Quarter: 2012Q1

REPORT INFORMATION
  Report Type: 
  Country: None (occurrence: None)
  Receive Date: 20120110
  Receipt Date: 20120110
  Transmission Date: 20120608
  Serious: No
  Sender: FDA-Public Use
  Company Number: None

PATIENT
  Age: 58 Year
  Sex: Male
  Weight: 118.2 kg

DRUGS (1)
  1. BUDESONIDE/FORMOTEROL [Suspect]
     Dosage: 2 PUFF(S) BID INHALE
     Route: 055
     Dates: start: 20111027, end: 20111108

REACTIONS (1)
  - PHARYNGEAL OEDEMA [None]
